FAERS Safety Report 4469454-9 (Version None)
Quarter: 2004Q4

REPORT INFORMATION
  Report Type: 
  Country: None (occurrence: None)
  Receive Date: 20041005
  Receipt Date: 20040927
  Transmission Date: 20050328
  Serious: Yes (Hospitalization, Other)
  Sender: FDA-Public Use
  Company Number: 2004070585

PATIENT
  Age: 80 Year
  Sex: Female

DRUGS (2)
  1. LIPITOR [Suspect]
     Indication: BLOOD CHOLESTEROL INCREASED
     Dosage: (20 MG), ORAL
     Route: 048
     Dates: start: 20030801
  2. IPRATROPIUM BROMIDE [Suspect]
     Indication: POSTNASAL DRIP
     Dates: start: 20031201

REACTIONS (3)
  - COUGH [None]
  - HOSPITALISATION [None]
  - POSTNASAL DRIP [None]
